FAERS Safety Report 9026957 (Version 1)
Quarter: 2013Q1

REPORT INFORMATION
  Report Type: Spontaneous
  Country: US (occurrence: US)
  Receive Date: 20130123
  Receipt Date: 20130123
  Transmission Date: 20140127
  Serious: Yes (Other)
  Sender: FDA-Public Use
  Company Number: US-BANPHARM-20130533

PATIENT
  Age: 81 Year
  Sex: Female
  Weight: 66.68 kg

DRUGS (5)
  1. IBUPROFEN [Suspect]
     Indication: PIRIFORMIS SYNDROME
     Dosage: 3 DF, BID,
     Route: 048
     Dates: start: 20130102, end: 20130102
  2. ASPIRIN [Concomitant]
  3. PRAVASTATIN [Concomitant]
  4. LEVOTHYROXIN [Concomitant]
  5. ATENOLOL [Concomitant]

REACTIONS (5)
  - Pharyngeal oedema [Recovered/Resolved]
  - Eye swelling [Recovered/Resolved]
  - Pruritus [Recovered/Resolved]
  - Sneezing [Recovered/Resolved]
  - Incorrect dose administered [Unknown]
